FAERS Safety Report 17388976 (Version 1)
Quarter: 2020Q1

REPORT INFORMATION
  Report Type: Spontaneous
  Country: US (occurrence: US)
  Receive Date: 20200123
  Receipt Date: 20200123
  Transmission Date: 20200409
  Serious: Yes (Death)
  Sender: FDA-Public Use
  Company Number: None

PATIENT
  Age: 57 Year
  Sex: Male

DRUGS (11)
  1. DIPHENHYDRAMINE. [Suspect]
     Active Substance: DIPHENHYDRAMINE
     Indication: BONE CANCER
     Dosage: ?          OTHER DOSE:50MG/ML SDV;OTHER FREQUENCY:25MG ON DAY 1,8,15;?
     Route: 042
  2. DEXAMETHASONE. [Suspect]
     Active Substance: DEXAMETHASONE
  3. GRANISETRON [Suspect]
     Active Substance: GRANISETRON
     Indication: HEPATIC ANGIOSARCOMA
     Dosage: ?          OTHER DOSE:1MG/ML SDV;?
     Route: 042
  4. BENZONATATE CAP [Concomitant]
  5. PACLITAXEL. [Concomitant]
     Active Substance: PACLITAXEL
  6. SIMETHICONE CHW [Concomitant]
  7. HYDROCODINE POW BITARTRA [Concomitant]
  8. DOXORUBICIN LIPO [Concomitant]
  9. FUROSEMIDE TAB [Concomitant]
  10. ALLOPURINOL. [Concomitant]
     Active Substance: ALLOPURINOL
  11. POTASSIUM POW CHILORIDE [Concomitant]

REACTIONS (1)
  - Death [None]

NARRATIVE: CASE EVENT DATE: 20200111
